FAERS Safety Report 16819468 (Version 1)
Quarter: 2019Q3

REPORT INFORMATION
  Report Type: Spontaneous
  Country: US (occurrence: US)
  Receive Date: 20190917
  Receipt Date: 20190917
  Transmission Date: 20191005
  Serious: Yes (Hospitalization)
  Sender: FDA-Public Use
  Company Number: US-TEVA-2019-US-1088097

PATIENT
  Sex: Female

DRUGS (17)
  1. ALBUTEROL. [Concomitant]
     Active Substance: ALBUTEROL
  2. HUMALOG [Concomitant]
     Active Substance: INSULIN LISPRO
  3. LIDOCAINE. [Concomitant]
     Active Substance: LIDOCAINE
  4. ONDANSETRON [Concomitant]
     Active Substance: ONDANSETRON
  5. FLONASE [Concomitant]
     Active Substance: FLUTICASONE PROPIONATE
  6. TRESIBA [Concomitant]
     Active Substance: INSULIN DEGLUDEC
  7. COMPAZINE [Concomitant]
     Active Substance: PROCHLORPERAZINE MALEATE
  8. LISINOPRIL. [Concomitant]
     Active Substance: LISINOPRIL
  9. NEURONTIN [Concomitant]
     Active Substance: GABAPENTIN
  10. OMEPRAZOLE. [Concomitant]
     Active Substance: OMEPRAZOLE
  11. MECLIZINE [Concomitant]
     Active Substance: MECLIZINE HYDROCHLORIDE
  12. SYNRIBO [Suspect]
     Active Substance: OMACETAXINE MEPESUCCINATE
     Indication: CHRONIC MYELOID LEUKAEMIA
     Dosage: 2.4MG/0.7ML, FOR 14 DAYS.
     Dates: start: 20190706
  13. MAALOX ANTACID [Concomitant]
     Active Substance: ALUMINUM HYDROXIDE\DIMETHICONE\MAGNESIUM HYDROXIDE
  14. TASIGNA [Concomitant]
     Active Substance: NILOTINIB
  15. LEVOTHYROXINE. [Concomitant]
     Active Substance: LEVOTHYROXINE
  16. LORATADINE. [Concomitant]
     Active Substance: LORATADINE
  17. DIPHENHYDRAMINE. [Concomitant]
     Active Substance: DIPHENHYDRAMINE

REACTIONS (3)
  - Therapy cessation [Unknown]
  - Hospitalisation [Unknown]
  - Platelet count increased [Unknown]
